FAERS Safety Report 24636453 (Version 1)
Quarter: 2024Q4

REPORT INFORMATION
  Report Type: Spontaneous
  Country: US (occurrence: US)
  Receive Date: 20241119
  Receipt Date: 20241119
  Transmission Date: 20250115
  Serious: No
  Sender: ELI LILLY AND COMPANY
  Company Number: US-ELI_LILLY_AND_COMPANY-US202411011209

PATIENT
  Age: 58 Year
  Sex: Female

DRUGS (1)
  1. HUMULIN N [Suspect]
     Active Substance: INSULIN HUMAN
     Indication: Product used for unknown indication
     Dosage: 8 U, DAILY
     Route: 065
     Dates: start: 202402

REACTIONS (4)
  - Visual impairment [Unknown]
  - Blood glucose increased [Recovered/Resolved]
  - Accidental underdose [Unknown]
  - Product storage error [Unknown]
